FAERS Safety Report 5572301-5 (Version None)
Quarter: 2007Q4

REPORT INFORMATION
  Report Type: 
  Country: None (occurrence: None)
  Receive Date: 20071221
  Receipt Date: 20071220
  Transmission Date: 20080405
  Serious: Yes (Death)
  Sender: FDA-Public Use
  Company Number: BR-GILEAD-2007-0014581

PATIENT
  Age: 37 Year
  Sex: Male
  Weight: 67.1 kg

DRUGS (10)
  1. EMTRICITABINE/TENOFOVIR DISOPROXIL FUMARATE [Suspect]
     Indication: HIV INFECTION
     Route: 048
     Dates: start: 20071101, end: 20071119
  2. EFAVIRENZ [Concomitant]
     Indication: HIV INFECTION
     Route: 048
     Dates: start: 20071101, end: 20071119
  3. SMT/TMP [Concomitant]
     Indication: ANTIFUNGAL PROPHYLAXIS
     Route: 048
     Dates: start: 20070819, end: 20071120
  4. VITAMIN B6 [Concomitant]
     Indication: NEUROPATHY
     Route: 048
     Dates: start: 20070905, end: 20071120
  5. AZITHROMYCIN [Concomitant]
     Indication: OPPORTUNISTIC INFECTION PROPHYLAXIS
     Route: 048
     Dates: start: 20070905, end: 20071120
  6. AMITRIPTILIN [Concomitant]
     Indication: NEUROPATHY
     Route: 048
     Dates: start: 20070911, end: 20071120
  7. ACETAMINOPHEN W/ CODEINE [Concomitant]
     Indication: PAIN
     Route: 048
     Dates: start: 20071030, end: 20071120
  8. DEXCLORPHENIRAM [Concomitant]
     Indication: PRURIGO
     Route: 048
     Dates: start: 20071030, end: 20071120
  9. RIFAMPIN/ISONIAZID [Concomitant]
     Indication: TUBERCULOSIS
     Dates: start: 20070824, end: 20071120
  10. PIRAZINAMIDE [Concomitant]
     Dates: start: 20070824, end: 20071030

REACTIONS (1)
  - DEATH [None]
